FAERS Safety Report 6271687-6 (Version None)
Quarter: 2009Q3

REPORT INFORMATION
  Report Type: 
  Country: None (occurrence: None)
  Receive Date: 20090713
  Receipt Date: 20081103
  Transmission Date: 20100115
  Serious: Yes (Other)
  Sender: FDA-Public Use
  Company Number: 56246

PATIENT
  Age: 58 Year
  Sex: Female
  Weight: 67.1324 kg

DRUGS (1)
  1. MIDAZOLAM HCL [Suspect]
     Indication: AMNESIA
     Dosage: 2 MG IV, 1MG IVP
     Route: 042
     Dates: start: 20080930, end: 20081020

REACTIONS (1)
  - DRUG INEFFECTIVE [None]
